FAERS Safety Report 9954006 (Version 1)
Quarter: 2014Q1

REPORT INFORMATION
  Report Type: Spontaneous
  Country: US (occurrence: US)
  Receive Date: 20140304
  Receipt Date: 20140304
  Transmission Date: 20141002
  Serious: No
  Sender: FDA-Public Use
  Company Number: US-TARO-2013P1018198

PATIENT
  Age: 71 Year
  Sex: Male
  Weight: 108.86 kg

DRUGS (7)
  1. LAMOTRIGINE TABLETS 100 MG [Suspect]
     Indication: EPILEPSY
     Route: 048
     Dates: start: 20130701
  2. GENERIC CELEXA [Concomitant]
  3. GENERIC ZOCOR [Concomitant]
  4. NABUMETONE [Concomitant]
  5. LANTUS INSULIN [Concomitant]
  6. NOVOLOG INSULIN [Concomitant]
  7. NOVOLOG INSULIN [Concomitant]

REACTIONS (2)
  - Choking [Not Recovered/Not Resolved]
  - Product substitution issue [Not Recovered/Not Resolved]
